FAERS Safety Report 7130557-1 (Version None)
Quarter: 2010Q4

REPORT INFORMATION
  Report Type: 
  Country: None (occurrence: None)
  Receive Date: 20101201
  Receipt Date: 20101122
  Transmission Date: 20110411
  Serious: Yes (Other)
  Sender: FDA-Public Use
  Company Number: MY-JNJFOC-20101108165

PATIENT
  Age: 53 Year
  Sex: Female

DRUGS (1)
  1. CAELYX [Suspect]
     Indication: OVARIAN CANCER RECURRENT
     Dosage: 1 TIME USED
     Route: 042

REACTIONS (3)
  - DISCOMFORT [None]
  - DYSPNOEA [None]
  - FLUSHING [None]
